FAERS Safety Report 20177731 (Version 1)
Quarter: 2021Q4

REPORT INFORMATION
  Report Type: Report from Study
  Country: US (occurrence: US)
  Receive Date: 20211213
  Receipt Date: 20211213
  Transmission Date: 20220303
  Serious: Yes (Hospitalization)
  Sender: FDA-Public Use
  Company Number: US-PFIZER INC-202101706436

PATIENT
  Age: 7 Year
  Sex: Male
  Weight: 25.5 kg

DRUGS (4)
  1. LORLATINIB [Suspect]
     Active Substance: LORLATINIB
     Indication: Neuroblastoma
     Dosage: 105 MG, 1X/DAY
     Route: 048
     Dates: start: 20211119
  2. TOPOTECAN HYDROCHLORIDE [Suspect]
     Active Substance: TOPOTECAN HYDROCHLORIDE
     Indication: Neuroblastoma
     Dosage: 0.675 MG, 1X/DAY
     Route: 042
     Dates: start: 20211119, end: 20211123
  3. CYTOXAN [Suspect]
     Active Substance: CYCLOPHOSPHAMIDE
     Indication: Neuroblastoma
     Dosage: 227.6 MG, 1X/DAY
     Route: 042
     Dates: start: 20211119, end: 20211123
  4. PEGFILGRASTIM [Concomitant]
     Active Substance: PEGFILGRASTIM
     Indication: Neuroblastoma
     Dosage: 2.5 MG, 1X/DAY
     Route: 058
     Dates: start: 20211124, end: 20211124

REACTIONS (1)
  - Febrile neutropenia [Recovered/Resolved]

NARRATIVE: CASE EVENT DATE: 20211126
